FAERS Safety Report 23668443 (Version 1)
Quarter: 2024Q1

REPORT INFORMATION
  Report Type: Spontaneous
  Country: US (occurrence: None)
  Receive Date: 20240322
  Receipt Date: 20240322
  Transmission Date: 20240410
  Serious: Yes (Death)
  Sender: FDA-Public Use
  Company Number: None

PATIENT
  Age: 71 Year
  Sex: Male

DRUGS (12)
  1. PIRFENIDONE [Suspect]
     Active Substance: PIRFENIDONE
     Indication: Interstitial lung disease
     Dosage: 801 MG TID ORAL?
     Route: 048
     Dates: start: 20220209, end: 20240227
  2. EPLERENONE [Concomitant]
     Active Substance: EPLERENONE
  3. JARDIANCE [Concomitant]
     Active Substance: EMPAGLIFLOZIN
  4. MIRABEGRON [Concomitant]
     Active Substance: MIRABEGRON
  5. FINASTERIDE [Concomitant]
     Active Substance: FINASTERIDE
  6. PAROXETINE [Concomitant]
     Active Substance: PAROXETINE
  7. AMLODIPINE [Concomitant]
     Active Substance: AMLODIPINE BESYLATE
  8. METOPROLOL [Concomitant]
     Active Substance: METOPROLOL
  9. TERAZOSIN [Concomitant]
     Active Substance: TERAZOSIN HYDROCHLORIDE
  10. ATORVASTATIN [Concomitant]
     Active Substance: ATORVASTATIN
  11. BACLOFEN [Concomitant]
     Active Substance: BACLOFEN
  12. ASPIRIN [Concomitant]
     Active Substance: ASPIRIN

REACTIONS (3)
  - Lung adenocarcinoma [None]
  - Respiratory failure [None]
  - Acute respiratory failure [None]

NARRATIVE: CASE EVENT DATE: 20240206
